FAERS Safety Report 18033068 (Version 1)
Quarter: 2020Q3

REPORT INFORMATION
  Report Type: Spontaneous
  Country: US (occurrence: US)
  Receive Date: 20200716
  Receipt Date: 20200716
  Transmission Date: 20201103
  Serious: Yes (Other)
  Sender: FDA-Public Use
  Company Number: US-AMGEN-USASP2020111337

PATIENT
  Age: 61 Year
  Sex: Female

DRUGS (2)
  1. BEVACIZUMAB. [Suspect]
     Active Substance: BEVACIZUMAB
     Indication: MUCINOUS ADENOCARCINOMA OF APPENDIX
     Dosage: UNK
     Route: 065
  2. FOLFIRI [Concomitant]
     Active Substance: FLUOROURACIL\IRINOTECAN\LEUCOVORIN
     Indication: MUCINOUS ADENOCARCINOMA OF APPENDIX
     Dosage: UNK
     Route: 065

REACTIONS (2)
  - Mucinous adenocarcinoma of appendix [Unknown]
  - Off label use [Unknown]
